FAERS Safety Report 4687448-5 (Version None)
Quarter: 2005Q2

REPORT INFORMATION
  Report Type: 
  Country: None (occurrence: None)
  Receive Date: 20050609
  Receipt Date: 20050609
  Transmission Date: 20051028
  Serious: No
  Sender: FDA-Public Use
  Company Number: None

PATIENT
  Age: 48 Year
  Sex: Male
  Weight: 86.1834 kg

DRUGS (1)
  1. CRESTOR [Suspect]
     Indication: BLOOD CHOLESTEROL INCREASED
     Dosage: 10MG   DAILY
     Dates: start: 20040929, end: 20050401

REACTIONS (5)
  - FEELING ABNORMAL [None]
  - MUSCLE TWITCHING [None]
  - MYALGIA [None]
  - NERVOUS SYSTEM DISORDER [None]
  - PARAESTHESIA [None]
